FAERS Safety Report 4492535-0 (Version None)
Quarter: 2004Q4

REPORT INFORMATION
  Report Type: 
  Country: None (occurrence: None)
  Receive Date: 20041029
  Receipt Date: 20041020
  Transmission Date: 20050328
  Serious: Yes (Hospitalization)
  Sender: FDA-Public Use
  Company Number: 2004CG02134

PATIENT
  Age: 63 Year
  Sex: Female

DRUGS (15)
  1. MOPRAL [Suspect]
     Dosage: 20 MG DAILY PO
     Route: 048
  2. SOLU-MEDROL [Suspect]
     Indication: CHEMOTHERAPY
     Dosage: 60 MG ONCE IV
     Route: 042
     Dates: start: 20030120, end: 20030120
  3. SOLU-MEDROL [Suspect]
     Indication: CHEMOTHERAPY
     Dosage: 60 MG ONCE IV
     Route: 042
     Dates: start: 20030210, end: 20030210
  4. SOLU-MEDROL [Suspect]
     Indication: CHEMOTHERAPY
     Dosage: 60 MG ONCE IV
     Route: 042
     Dates: start: 20030303, end: 20030303
  5. SOLU-MEDROL [Suspect]
     Indication: CHEMOTHERAPY
     Dosage: 60 MG ONCE IV
     Route: 042
     Dates: start: 20030331, end: 20030331
  6. ZOPHREN [Suspect]
     Indication: CHEMOTHERAPY
     Dosage: 1 DF ONCE IV
     Route: 042
     Dates: start: 20030120, end: 20030120
  7. ZOPHREN [Suspect]
     Indication: CHEMOTHERAPY
     Dosage: 1 DF ONCE IV
     Route: 042
     Dates: start: 20030210, end: 20030210
  8. ZOPHREN [Suspect]
     Indication: CHEMOTHERAPY
     Dosage: 1 DF ONCE IV
     Route: 042
     Dates: start: 20030303, end: 20030303
  9. ZOPHREN [Suspect]
     Indication: CHEMOTHERAPY
     Dosage: 1 DF ONCE IV
     Route: 042
     Dates: start: 20030331, end: 20030331
  10. TAXOTERE [Suspect]
     Indication: CHEMOTHERAPY
     Dosage: 132 MG ONCE IV
     Route: 042
     Dates: start: 20030120, end: 20030120
  11. TAXOTERE [Suspect]
     Indication: CHEMOTHERAPY
     Dosage: 132 MG ONCE IV
     Route: 042
     Dates: start: 20030210, end: 20030210
  12. TAXOTERE [Suspect]
     Indication: CHEMOTHERAPY
     Dosage: 132 MG ONCE IV
     Route: 042
     Dates: start: 20030303, end: 20030303
  13. TAXOTERE [Suspect]
     Indication: CHEMOTHERAPY
     Dosage: 132 MG ONCE IV
     Route: 042
     Dates: start: 20030331, end: 20030331
  14. STILNOX [Suspect]
     Dosage: 1.5 DF DAILY PO
     Route: 048
  15. SERESTA [Suspect]
     Dosage: 50 MG DAILY PO
     Route: 048

REACTIONS (1)
  - VENTRICULAR TACHYCARDIA [None]
